FAERS Safety Report 12622458 (Version 1)
Quarter: 2016Q3

REPORT INFORMATION
  Report Type: Report from Study
  Country: US (occurrence: US)
  Receive Date: 20160804
  Receipt Date: 20160804
  Transmission Date: 20161109
  Serious: Yes (Other)
  Sender: FDA-Public Use
  Company Number: US-PFIZER INC-3175437

PATIENT
  Age: 46 Year
  Sex: Female

DRUGS (4)
  1. ENBREL [Suspect]
     Active Substance: ETANERCEPT
     Dosage: UNK
  2. METHOTREXATE SODIUM. [Suspect]
     Active Substance: METHOTREXATE SODIUM
     Dosage: 0.6 ML, WEEKLY
     Dates: start: 201504, end: 20160111
  3. ENBREL [Suspect]
     Active Substance: ETANERCEPT
     Indication: PSORIATIC ARTHROPATHY
     Dosage: 50 MG, WEEKLY (QWK)
     Dates: start: 20141031
  4. METHOTREXATE SODIUM. [Suspect]
     Active Substance: METHOTREXATE SODIUM
     Indication: PRODUCT USED FOR UNKNOWN INDICATION
     Dosage: 0.8 ML, WEEKLY
     Dates: end: 201504

REACTIONS (26)
  - Condition aggravated [Unknown]
  - Skin swelling [Recovered/Resolved]
  - Drug effect incomplete [Unknown]
  - Injection site pain [Unknown]
  - Skin reaction [Recovered/Resolved]
  - Discomfort [Not Recovered/Not Resolved]
  - Inflammation [Unknown]
  - Nasopharyngitis [Not Recovered/Not Resolved]
  - Injection site swelling [Recovered/Resolved]
  - Neuropathy peripheral [Unknown]
  - Injection site rash [Recovered/Resolved]
  - Pain in extremity [Unknown]
  - Sensitivity to weather change [Unknown]
  - Cough [Unknown]
  - Psoriatic arthropathy [Unknown]
  - Erythema [Recovered/Resolved]
  - Sinus pain [Recovered/Resolved]
  - Back pain [Unknown]
  - Injection site reaction [Not Recovered/Not Resolved]
  - Musculoskeletal pain [Unknown]
  - Oral herpes [Recovered/Resolved]
  - Injection site bruising [Unknown]
  - Fatigue [Not Recovered/Not Resolved]
  - Arthralgia [Not Recovered/Not Resolved]
  - Therapy non-responder [Not Recovered/Not Resolved]
  - Myalgia [Unknown]

NARRATIVE: CASE EVENT DATE: 2014
